FAERS Safety Report 17791800 (Version 1)
Quarter: 2020Q2

REPORT INFORMATION
  Report Type: Spontaneous
  Country: US (occurrence: US)
  Receive Date: 20200515
  Receipt Date: 20200515
  Transmission Date: 20200714
  Serious: Yes (Disabling, Other)
  Sender: FDA-Public Use
  Company Number: US-PFIZER INC-2020193849

PATIENT
  Age: 52 Year
  Sex: Female
  Weight: 85.73 kg

DRUGS (1)
  1. DESVENLAFAXINE SUCCINATE MONOHYDRATE [Suspect]
     Active Substance: DESVENLAFAXINE SUCCINATE
     Indication: DEPRESSION
     Dosage: 50 MG, 1X/DAY
     Route: 048
     Dates: start: 2013, end: 20200501

REACTIONS (9)
  - Emotional disorder [Recovering/Resolving]
  - Hypersomnia [Recovering/Resolving]
  - Intentional product misuse [Unknown]
  - Restless legs syndrome [Recovered/Resolved]
  - Sexual dysfunction [Recovered/Resolved]
  - Head titubation [Recovering/Resolving]
  - Withdrawal syndrome [Recovering/Resolving]
  - Vision blurred [Recovering/Resolving]
  - Rapid eye movements sleep abnormal [Unknown]

NARRATIVE: CASE EVENT DATE: 2013
